FAERS Safety Report 16150030 (Version 1)
Quarter: 2019Q2

REPORT INFORMATION
  Report Type: Spontaneous
  Country: UA (occurrence: UA)
  Receive Date: 20190403
  Receipt Date: 20190403
  Transmission Date: 20190711
  Serious: Yes (Other)
  Sender: FDA-Public Use
  Company Number: UA-PFIZER INC-2019143895

PATIENT
  Sex: Male

DRUGS (1)
  1. SUTENT [Suspect]
     Active Substance: SUNITINIB MALATE
     Dosage: 50 MG, CYCLIC (#28 )

REACTIONS (4)
  - Perineal ulceration [Unknown]
  - Anal ulcer [Unknown]
  - Mouth ulceration [Unknown]
  - Haemoglobin decreased [Unknown]
